FAERS Safety Report 4611058-9 (Version None)
Quarter: 2005Q1

REPORT INFORMATION
  Report Type: 
  Country: None (occurrence: None)
  Receive Date: 20050315
  Receipt Date: 20050315
  Transmission Date: 20050727
  Serious: Yes (Hospitalization)
  Sender: FDA-Public Use
  Company Number: None

PATIENT
  Age: 72 Year
  Sex: Female
  Weight: 74.3899 kg

DRUGS (8)
  1. GEMCITABINE [Suspect]
     Indication: OVARIAN CANCER
     Dosage: 1000 MG/M2 D1,8
     Dates: start: 20050110, end: 20050131
  2. GEMCITABINE [Suspect]
     Indication: OVARIAN CANCER
     Dosage: 1000 MG/M2 D1,8
     Dates: start: 20050207, end: 20050224
  3. GEMCITABINE [Suspect]
     Indication: OVARIAN CANCER
     Dosage: 1000 MG/M2 D1,8
     Dates: start: 20050103
  4. GEMCITABINE [Suspect]
     Indication: OVARIAN CANCER
     Dosage: 1000 MG/M2 D1,8
     Dates: start: 20050303
  5. CARBOPLATIN [Suspect]
     Indication: OVARIAN CANCER
     Dosage: AUC 4 D1
     Dates: start: 20050110, end: 20050131
  6. CARBOPLATIN [Suspect]
     Indication: OVARIAN CANCER
     Dosage: AUC 4 D1
     Dates: start: 20050207, end: 20050224
  7. CARBOPLATIN [Suspect]
     Indication: OVARIAN CANCER
     Dosage: AUC 4 D1
     Dates: start: 20050103
  8. CARBOPLATIN [Suspect]
     Indication: OVARIAN CANCER
     Dosage: AUC 4 D1
     Dates: start: 20050303

REACTIONS (2)
  - HAEMOGLOBIN DECREASED [None]
  - PLATELET COUNT DECREASED [None]
